FAERS Safety Report 24359652 (Version 1)
Quarter: 2024Q3

REPORT INFORMATION
  Report Type: Spontaneous
  Country: JP (occurrence: JP)
  Receive Date: 20240924
  Receipt Date: 20240924
  Transmission Date: 20241017
  Serious: No
  Sender: MERCK
  Company Number: JP-009507513-2409JPN005071

PATIENT
  Age: 81 Year
  Sex: Male

DRUGS (3)
  1. MOLNUPIRAVIR [Suspect]
     Active Substance: MOLNUPIRAVIR
     Indication: COVID-19
     Dosage: UNK
  2. CYCLOPHOSPHAMIDE;DOXORUBICIN;POLATUZUMAB VEDOTIN;PREDNISOLONE;RITUXIMA [Concomitant]
     Indication: Diffuse large B-cell lymphoma
     Dosage: UNK
  3. ENSITRELVIR [Concomitant]
     Active Substance: ENSITRELVIR
     Indication: COVID-19
     Dosage: UNK

REACTIONS (1)
  - Product use in unapproved indication [Unknown]
